FAERS Safety Report 24925213 (Version 1)
Quarter: 2025Q1

REPORT INFORMATION
  Report Type: Report from Study
  Country: US (occurrence: US)
  Receive Date: 20250204
  Receipt Date: 20250204
  Transmission Date: 20250408
  Serious: No
  Sender: EXELIXIS
  Company Number: US-EXELIXIS-CABO-24078178

PATIENT
  Sex: Male

DRUGS (11)
  1. CABOMETYX [Suspect]
     Active Substance: CABOZANTINIB S-MALATE
     Indication: Neuroendocrine tumour
     Dosage: 40 MG, QD
     Dates: start: 20240511, end: 20240610
  2. CABOMETYX [Suspect]
     Active Substance: CABOZANTINIB S-MALATE
     Dosage: 20 MG, QD
     Dates: start: 20240622
  3. BENADRYL [Concomitant]
     Active Substance: DIPHENHYDRAMINE HYDROCHLORIDE
  4. BENAZEPRIL [Concomitant]
     Active Substance: BENAZEPRIL HYDROCHLORIDE
  5. FAMOTIDINE [Concomitant]
     Active Substance: FAMOTIDINE
  6. OMEPRAZOLE [Concomitant]
     Active Substance: OMEPRAZOLE
  7. SANDOSTATIN LAR DEPOT [Concomitant]
     Active Substance: OCTREOTIDE ACETATE
  8. TYLENOL [Concomitant]
     Active Substance: ACETAMINOPHEN
  9. XGEVA [Concomitant]
     Active Substance: DENOSUMAB
  10. AMLODIPINE [Concomitant]
     Active Substance: AMLODIPINE BESYLATE
  11. HYDROCHLOROTHIAZIDE [Concomitant]
     Active Substance: HYDROCHLOROTHIAZIDE

REACTIONS (10)
  - Taste disorder [Not Recovered/Not Resolved]
  - Blood pressure increased [Recovering/Resolving]
  - Fatigue [Not Recovered/Not Resolved]
  - Decreased appetite [Not Recovered/Not Resolved]
  - Nausea [Recovering/Resolving]
  - Constipation [Recovered/Resolved]
  - Headache [Not Recovered/Not Resolved]
  - Feeling hot [Not Recovered/Not Resolved]
  - Blood test abnormal [Not Recovered/Not Resolved]
  - Off label use [Unknown]
